FAERS Safety Report 16307962 (Version 1)
Quarter: 2019Q2

REPORT INFORMATION
  Report Type: Spontaneous
  Country: US (occurrence: US)
  Receive Date: 20190514
  Receipt Date: 20190514
  Transmission Date: 20190711
  Serious: Yes (Hospitalization, Other)
  Sender: FDA-Public Use
  Company Number: US-AUROBINDO-AUR-APL-2019-025636

PATIENT

DRUGS (10)
  1. CIDOFOVIR. [Suspect]
     Active Substance: CIDOFOVIR
     Indication: PRODUCT USED FOR UNKNOWN INDICATION
     Dosage: 0.23 MILLIGRAM/KILOGRAM
     Route: 065
  2. COTRIMOXAZOLE [Concomitant]
     Active Substance: SULFAMETHOXAZOLE\TRIMETHOPRIM
     Indication: ANTIFUNGAL PROPHYLAXIS
     Dosage: UNK
     Route: 065
  3. MYCOPHENOLATE MOFETIL. [Suspect]
     Active Substance: MYCOPHENOLATE MOFETIL
     Dosage: 250 MILLIGRAM, DAILY
     Route: 065
  4. TACROLIMUS. [Suspect]
     Active Substance: TACROLIMUS
     Indication: PRODUCT USED FOR UNKNOWN INDICATION
     Dosage: UNK ( 5-6 NG/ML)
     Route: 065
  5. VALGANCICLOVIR. [Concomitant]
     Active Substance: VALGANCICLOVIR
     Indication: ANTIFUNGAL PROPHYLAXIS
     Dosage: UNK
     Route: 065
  6. ANTITHYMOCYTE IMMUNOGLOBULIN [Suspect]
     Active Substance: THYMOCYTE IMMUNE GLOBULIN NOS
     Indication: PRODUCT USED FOR UNKNOWN INDICATION
     Dosage: 4.7 MILLIGRAM/KILOGRAM
     Route: 065
  7. MYCOPHENOLATE MOFETIL. [Suspect]
     Active Substance: MYCOPHENOLATE MOFETIL
     Indication: PRODUCT USED FOR UNKNOWN INDICATION
     Dosage: UNK
     Route: 065
  8. TACROLIMUS. [Suspect]
     Active Substance: TACROLIMUS
     Dosage: UNK ( 8-10 NG/ML)
     Route: 065
  9. TACROLIMUS. [Suspect]
     Active Substance: TACROLIMUS
     Dosage: UNK (7-9 NG/ML)
     Route: 065
  10. PREDNISONE. [Suspect]
     Active Substance: PREDNISONE
     Indication: PRODUCT USED FOR UNKNOWN INDICATION
     Dosage: UNK
     Route: 065

REACTIONS (18)
  - Urinary tract infection enterococcal [Unknown]
  - Polyomavirus-associated nephropathy [Recovered/Resolved]
  - Cytomegalovirus viraemia [Unknown]
  - Productive cough [Unknown]
  - Benign prostatic hyperplasia [Unknown]
  - Muscle spasms [Unknown]
  - Prostatitis [Unknown]
  - Pyelonephritis [Recovered/Resolved]
  - Cytomegalovirus infection [Unknown]
  - Fatigue [Unknown]
  - Hydronephrosis [Recovered/Resolved]
  - Haematuria [Recovered/Resolved]
  - Injury [Unknown]
  - BK virus infection [Unknown]
  - Diarrhoea [Unknown]
  - Nephritis [Recovered/Resolved]
  - Nephropathy [Recovered/Resolved]
  - Renal impairment [Recovered/Resolved]
